FAERS Safety Report 14628137 (Version 1)
Quarter: 2018Q1

REPORT INFORMATION
  Report Type: Spontaneous
  Country: US (occurrence: US)
  Receive Date: 20180312
  Receipt Date: 20180312
  Transmission Date: 20180509
  Serious: No
  Sender: FDA-Public Use
  Company Number: US-ALLERGAN-1713957US

PATIENT
  Age: 63 Year
  Sex: Female

DRUGS (1)
  1. ESTRACE [Suspect]
     Active Substance: ESTRADIOL
     Indication: VULVOVAGINAL DRYNESS
     Dosage: UNK, BI-WEEKLY
     Route: 061
     Dates: start: 2015

REACTIONS (1)
  - Limb injury [Recovering/Resolving]

NARRATIVE: CASE EVENT DATE: 201704
